FAERS Safety Report 8438547-3 (Version None)
Quarter: 2012Q2

REPORT INFORMATION
  Report Type: 
  Country: None (occurrence: None)
  Receive Date: 20120615
  Receipt Date: 20120306
  Transmission Date: 20120825
  Serious: Yes (Other)
  Sender: FDA-Public Use
  Company Number: CA-ALVOGEN-2011AL000074

PATIENT
  Age: 42 Year
  Sex: Female

DRUGS (1)
  1. MACROBID [Suspect]
     Indication: URINARY TRACT INFECTION
     Route: 048
     Dates: start: 20100927

REACTIONS (4)
  - SWELLING FACE [None]
  - RASH [None]
  - OROPHARYNGEAL PAIN [None]
  - NAUSEA [None]
